FAERS Safety Report 18582237 (Version 13)
Quarter: 2021Q2

REPORT INFORMATION
  Report Type: Spontaneous
  Country: GB (occurrence: GB)
  Receive Date: 20201204
  Receipt Date: 20210602
  Transmission Date: 20210717
  Serious: Yes (Other)
  Sender: FDA-Public Use
  Company Number: GB-AUROBINDO-AUR-APL-2020-059139

PATIENT
  Age: 64 Year
  Sex: Female
  Weight: 58.35 kg

DRUGS (19)
  1. VALGANCICLOVIR. [Suspect]
     Active Substance: VALGANCICLOVIR
     Indication: CYTOMEGALOVIRUS CHORIORETINITIS
     Dosage: 3600 MILLIGRAM, ONCE A DAY
     Route: 048
     Dates: start: 20200916
  2. SODIUM CHLORIDE. [Suspect]
     Active Substance: SODIUM CHLORIDE
     Dosage: 0.9 PERCENT, MONTHLY
     Route: 042
     Dates: start: 20201028
  3. FILGRASTIM [Suspect]
     Active Substance: FILGRASTIM
     Indication: NEUTROPENIA
     Dosage: UNK
     Route: 065
  4. PENTAMIDINE ISETIONATE [Suspect]
     Active Substance: PENTAMIDINE ISETHIONATE
     Indication: ANTIFUNGAL PROPHYLAXIS
     Dosage: 240 MILLIGRAM 1 MONTH (240 MILLIGRAM, MONTHLY)
     Route: 065
     Dates: start: 20201028
  5. WATER FOR INJECTIONS [Suspect]
     Active Substance: WATER
     Indication: MEDICATION DILUTION
     Dosage: UNK (1 MONTH)
     Route: 065
  6. FILGRASTIM [Suspect]
     Active Substance: FILGRASTIM
     Dosage: 60 INTERNATIONAL UNIT, EVERY WEEK,( 60 MILLION IU, QW)
     Route: 058
     Dates: start: 20201020
  7. PENTAMIDINE [Suspect]
     Active Substance: PENTAMIDINE
     Indication: PROPHYLAXIS
     Dosage: UNK
     Route: 065
  8. PENTAMIDINE [Suspect]
     Active Substance: PENTAMIDINE
     Indication: NEUTROPENIA
     Dosage: 1 DF, QMO (SOLUTION FOR INJECTION)
     Route: 065
     Dates: start: 20201028
  9. PENTAMIDINE [Suspect]
     Active Substance: PENTAMIDINE
     Indication: ANTIFUNGAL PROPHYLAXIS
     Dosage: 240 MILLIGRAM, 1 MONTH
     Route: 065
     Dates: start: 20201028
  10. PENTAMIDINE ISETIONATE [Suspect]
     Active Substance: PENTAMIDINE ISETHIONATE
     Indication: NEUTROPENIA
     Dosage: UNK
     Route: 065
  11. SODIUM CHLORIDE. [Suspect]
     Active Substance: SODIUM CHLORIDE
     Dosage: UNK UNK, QMO
     Route: 042
     Dates: start: 20201028
  12. TOLVAPTAN [Suspect]
     Active Substance: TOLVAPTAN
     Indication: HYPONATRAEMIA
     Dosage: 75 MILLIGRAM, ONCE A DAY (75 MILLIGRAM, QD (OD) )
     Route: 048
     Dates: start: 20200218
  13. ZARXIO [Suspect]
     Active Substance: FILGRASTIM-SNDZ
     Indication: NEUTROPENIA
     Dosage: UNK
     Route: 065
  14. ZARXIO [Suspect]
     Active Substance: FILGRASTIM-SNDZ
     Dosage: 60 INTERNATIONAL UNIT, EVERY WEEK
     Route: 058
     Dates: start: 20201020
  15. PENTAMIDINE [Suspect]
     Active Substance: PENTAMIDINE
     Dosage: 1 DOSAGE FORM, 1 MONTH (1 DOSAGE FORM, MONTHLY)
     Route: 065
     Dates: start: 20201028
  16. SODIUM CHLORIDE. [Suspect]
     Active Substance: SODIUM CHLORIDE
     Indication: MEDICATION DILUTION
     Dosage: SOLUTION FOR INFUSION, MONTHLY (UNK (1), MONTHLY)
     Route: 042
     Dates: start: 20201028
  17. WATER FOR INJECTIONS [Suspect]
     Active Substance: WATER
     Dosage: UNK (1 MONTH)
     Route: 065
     Dates: start: 20201028
  18. SODIUM CHLORIDE. [Suspect]
     Active Substance: SODIUM CHLORIDE
     Indication: HYPONATRAEMIA
     Dosage: UNK, 1 MONTH
     Route: 042
  19. WATER FOR INJECTIONS [Suspect]
     Active Substance: WATER
     Dosage: UNK
     Route: 065
     Dates: start: 20201028

REACTIONS (5)
  - Pruritus [Recovered/Resolved]
  - Infusion site swelling [Recovered/Resolved]
  - Infusion site erythema [Recovered/Resolved]
  - Off label use [Unknown]
  - Intentional product misuse [Unknown]

NARRATIVE: CASE EVENT DATE: 20201020
